FAERS Safety Report 5391377-1 (Version None)
Quarter: 2007Q3

REPORT INFORMATION
  Report Type: 
  Country: None (occurrence: None)
  Receive Date: 20070716
  Receipt Date: 20070716
  Transmission Date: 20080115
  Serious: No
  Sender: FDA-Public Use
  Company Number: None

PATIENT
  Age: 86 Year
  Sex: Male

DRUGS (3)
  1. TOPROL-XL [Suspect]
     Dosage: TABLET, DELAYED RELEASE
  2. LEVAQUIN [Suspect]
     Dosage: TABLET
  3. CLEOCIN HYDROCHLORIDE [Suspect]
     Dosage: CAPSULE

REACTIONS (1)
  - DRUG DISPENSING ERROR [None]
